FAERS Safety Report 13780599 (Version 1)
Quarter: 2017Q3

REPORT INFORMATION
  Report Type: Spontaneous
  Country: US (occurrence: US)
  Receive Date: 20170724
  Receipt Date: 20170724
  Transmission Date: 20171127
  Serious: No
  Sender: FDA-Public Use
  Company Number: US-PFIZER INC-2017315276

PATIENT
  Age: 35 Year
  Sex: Female

DRUGS (9)
  1. TRANXENE SD [Suspect]
     Active Substance: CLORAZEPATE DIPOTASSIUM
  2. BELSOMRA [Suspect]
     Active Substance: SUVOREXANT
  3. EFFEXOR [Suspect]
     Active Substance: VENLAFAXINE HYDROCHLORIDE
  4. VANCOMYCIN HCL [Suspect]
     Active Substance: VANCOMYCIN HYDROCHLORIDE
  5. CLORAZEPATE [Suspect]
     Active Substance: CLORAZEPATE DIPOTASSIUM
  6. CAPSAICIN. [Suspect]
     Active Substance: CAPSAICIN
     Route: 061
  7. SULFAMETHOXAZOLE [Suspect]
     Active Substance: SULFAMETHOXAZOLE
  8. BIAXIN [Suspect]
     Active Substance: CLARITHROMYCIN
  9. DOXYCYCLINE HYCLATE. [Suspect]
     Active Substance: DOXYCYCLINE HYCLATE

REACTIONS (1)
  - Drug hypersensitivity [Unknown]
